FAERS Safety Report 18552493 (Version 2)
Quarter: 2020Q4

REPORT INFORMATION
  Report Type: Spontaneous
  Country: GB (occurrence: GB)
  Receive Date: 20201127
  Receipt Date: 20201215
  Transmission Date: 20210114
  Serious: Yes (Other)
  Sender: FDA-Public Use
  Company Number: GB-REGENERON PHARMACEUTICALS, INC.-2020-90928

PATIENT

DRUGS (3)
  1. EYLEA [Suspect]
     Active Substance: AFLIBERCEPT
     Dosage: 1 DF, ONCE, LEFT EYE
     Route: 031
     Dates: start: 20201021, end: 20201021
  2. EYLEA [Suspect]
     Active Substance: AFLIBERCEPT
     Dosage: 1 DF, ONCE, LEFT EYE
     Route: 031
     Dates: start: 20201118, end: 20201118
  3. EYLEA [Suspect]
     Active Substance: AFLIBERCEPT
     Indication: MACULAR OEDEMA
     Dosage: 1 DF, ONCE, LEFT EYE
     Route: 031

REACTIONS (2)
  - Intraocular pressure increased [Recovered/Resolved]
  - Blindness transient [Recovered/Resolved]
